FAERS Safety Report 16683646 (Version 3)
Quarter: 2022Q1

REPORT INFORMATION
  Report Type: Other
  Country: US (occurrence: None)
  Receive Date: 20190808
  Receipt Date: 20220221
  Transmission Date: 20220423
  Serious: Yes (Hospitalization, Other)
  Sender: FDA-Public Use
  Company Number: US-ROCHE-2369594

PATIENT
  Sex: Female
  Weight: 54.480 kg

DRUGS (15)
  1. OCREVUS [Suspect]
     Active Substance: OCRELIZUMAB
     Indication: Relapsing multiple sclerosis
     Route: 042
     Dates: start: 20170619, end: 20170619
  2. OCREVUS [Suspect]
     Active Substance: OCRELIZUMAB
     Route: 042
     Dates: start: 20170703, end: 20170703
  3. OCREVUS [Suspect]
     Active Substance: OCRELIZUMAB
     Route: 042
     Dates: start: 20180103, end: 20180103
  4. OCREVUS [Suspect]
     Active Substance: OCRELIZUMAB
     Route: 042
     Dates: start: 20180706, end: 20180706
  5. OCREVUS [Suspect]
     Active Substance: OCRELIZUMAB
     Dosage: (PRESCRIBED AS 300 MG ON DAY 1 AND DAY 15 AND 600 MG ONCE IN 6 MONTHS)
     Route: 042
  6. GABAPENTIN [Concomitant]
     Active Substance: GABAPENTIN
     Indication: Neuropathy peripheral
     Dosage: MORNING AND NIGHT
     Route: 048
     Dates: start: 2009
  7. OXYCODONE [Concomitant]
     Active Substance: OXYCODONE
     Indication: Pain
     Route: 048
     Dates: start: 2014
  8. CYANOCOBALAMIN [Concomitant]
     Active Substance: CYANOCOBALAMIN
     Dosage: 1000MCG/1ML
  9. ZANTAC [Concomitant]
     Active Substance: RANITIDINE HYDROCHLORIDE
     Route: 048
     Dates: start: 201801
  10. IRON [Concomitant]
     Active Substance: IRON
     Dates: start: 2009
  11. VITAMIN D3 [Concomitant]
     Active Substance: CHOLECALCIFEROL
     Route: 048
     Dates: start: 2009
  12. FIORICET [Concomitant]
     Active Substance: ACETAMINOPHEN\BUTALBITAL\CAFFEINE
     Indication: Headache
     Dosage: BEFORE MEALS
     Route: 048
     Dates: start: 2009
  13. OMEPRAZOLE [Concomitant]
     Active Substance: OMEPRAZOLE
     Dosage: BEFORE MEALS
     Route: 048
     Dates: start: 201303
  14. VITAMIN C [Concomitant]
     Active Substance: ASCORBIC ACID
     Dosage: YES
  15. OMEGA 3 [Concomitant]
     Active Substance: CAPSAICIN
     Dosage: YES
     Route: 048

REACTIONS (20)
  - Multiple sclerosis relapse [Not Recovered/Not Resolved]
  - Gait disturbance [Not Recovered/Not Resolved]
  - Visual impairment [Not Recovered/Not Resolved]
  - Urticaria [Unknown]
  - Alopecia [Unknown]
  - Vomiting [Unknown]
  - Neuropathy peripheral [Unknown]
  - Headache [Unknown]
  - Muscle spasms [Unknown]
  - Fatigue [Unknown]
  - Asthenia [Unknown]
  - Amnesia [Unknown]
  - Heart rate decreased [Unknown]
  - Coccydynia [Recovering/Resolving]
  - Balance disorder [Not Recovered/Not Resolved]
  - Incontinence [Not Recovered/Not Resolved]
  - Insomnia [Not Recovered/Not Resolved]
  - Fall [Unknown]
  - Malaise [Unknown]
  - Influenza [Recovered/Resolved]

NARRATIVE: CASE EVENT DATE: 20180101
